FAERS Safety Report 4404325-5 (Version None)
Quarter: 2004Q3

REPORT INFORMATION
  Report Type: 
  Country: None (occurrence: None)
  Receive Date: 20040721
  Receipt Date: 20040721
  Transmission Date: 20050211
  Serious: Yes (Hospitalization)
  Sender: FDA-Public Use
  Company Number: None

PATIENT
  Age: 56 Year
  Sex: Male

DRUGS (2)
  1. ASPIRIN [Suspect]
     Indication: SINUS PAIN
     Dosage: 2600 MG/ DAY OTC
  2. ASPIRIN [Suspect]
     Indication: SINUSITIS
     Dosage: 2600 MG/ DAY OTC

REACTIONS (1)
  - GASTROINTESTINAL HAEMORRHAGE [None]
